FAERS Safety Report 5753432-3 (Version None)
Quarter: 2008Q2

REPORT INFORMATION
  Report Type: 
  Country: None (occurrence: None)
  Receive Date: 20080527
  Receipt Date: 20080508
  Transmission Date: 20081010
  Serious: Yes (Hospitalization)
  Sender: FDA-Public Use
  Company Number: 2008AL004425

PATIENT
  Age: 65 Year
  Sex: Female
  Weight: 81.6475 kg

DRUGS (12)
  1. DIGOXIN [Suspect]
     Indication: ARRHYTHMIA
     Dosage: 0.25MG DAILY PO
     Route: 048
  2. LANOXIN [Concomitant]
  3. NITROGLYCERIN [Concomitant]
  4. TORPOL XL [Concomitant]
  5. LISINOPRIL [Concomitant]
  6. LEVOTHYROXINE SODIUM [Concomitant]
  7. HUMALOG [Concomitant]
  8. LANTUS [Concomitant]
  9. BUMEX [Concomitant]
  10. LOVASTATIN [Concomitant]
  11. CARAFATE [Concomitant]
  12. GABAPENTIN [Concomitant]

REACTIONS (5)
  - ASTHENIA [None]
  - HEART RATE DECREASED [None]
  - HEART RATE IRREGULAR [None]
  - RENAL FAILURE [None]
  - THERAPEUTIC AGENT TOXICITY [None]
